FAERS Safety Report 5084843-X (Version None)
Quarter: 2006Q3

REPORT INFORMATION
  Report Type: 
  Country: None (occurrence: None)
  Receive Date: 20060816
  Receipt Date: 20060731
  Transmission Date: 20061208
  Serious: Yes (Hospitalization)
  Sender: FDA-Public Use
  Company Number: S06-FRA-02002-01

PATIENT
  Age: 36 Year
  Sex: Male
  Weight: 80 kg

DRUGS (6)
  1. CITALOPRAM HYDROBROMIDE [Suspect]
     Indication: DEPRESSION
     Dosage: 20 MG QD PO
     Route: 048
     Dates: start: 20040101
  2. OMEPRAZOLE [Suspect]
     Dosage: 20 MG QD PO
     Route: 048
     Dates: start: 20060515
  3. ACECLOFENAC (ACECLOFENAC) [Concomitant]
  4. VASTERAL (TRIMETAZIDINE HYDROCHLORIDE) [Concomitant]
  5. COLTRAMYL (THIOCOLCHICOSIDE) [Concomitant]
  6. ACETAMINOPHEN W/ PROPOXYPHENE HCL [Concomitant]

REACTIONS (8)
  - BACK PAIN [None]
  - BASE EXCESS [None]
  - BLOOD BICARBONATE INCREASED [None]
  - DRUG INTERACTION [None]
  - OXYGEN SATURATION DECREASED [None]
  - PCO2 INCREASED [None]
  - PO2 DECREASED [None]
  - URINARY RETENTION [None]
